FAERS Safety Report 23375069 (Version 1)
Quarter: 2024Q1

REPORT INFORMATION
  Report Type: Report from Study
  Country: CH (occurrence: CH)
  Receive Date: 20240106
  Receipt Date: 20240106
  Transmission Date: 20240409
  Serious: Yes (Death)
  Sender: FDA-Public Use
  Company Number: CH-ABBVIE-5573338

PATIENT
  Age: 60 Year
  Sex: Female

DRUGS (4)
  1. CARBIDOPA\LEVODOPA [Suspect]
     Active Substance: CARBIDOPA\LEVODOPA
     Indication: Parkinson^s disease
     Dosage: MD: 3.8 ML, CRD: 5.3 ML/H, CRN: 3.8 ML/H, ED: 2.40 ML
     Route: 050
     Dates: start: 20231213, end: 20240104
  2. CARBIDOPA\LEVODOPA [Suspect]
     Active Substance: CARBIDOPA\LEVODOPA
     Dosage: MD: 3.8 ML, CRD: 4.9 ML/H, CRN: UNKNOWN, ED: 2.40 ML
     Route: 050
     Dates: start: 20230928, end: 20231213
  3. CARBIDOPA\LEVODOPA [Suspect]
     Active Substance: CARBIDOPA\LEVODOPA
     Dosage: MD: 3.8 ML, CRD: 4.9 ML/H, CRN: 3.0 ML/H, ED: 2.20 ML
     Route: 050
     Dates: start: 20230703, end: 20230928
  4. CARBIDOPA\LEVODOPA [Suspect]
     Active Substance: CARBIDOPA\LEVODOPA
     Route: 050
     Dates: start: 20170321

REACTIONS (2)
  - Death [Fatal]
  - General physical health deterioration [Unknown]

NARRATIVE: CASE EVENT DATE: 20240104
